FAERS Safety Report 9393267 (Version 3)
Quarter: 2013Q3

REPORT INFORMATION
  Report Type: Spontaneous
  Country: IT (occurrence: IT)
  Receive Date: 20130710
  Receipt Date: 20130813
  Transmission Date: 20140515
  Serious: Yes (Hospitalization)
  Sender: FDA-Public Use
  Company Number: IT-PFIZER INC-2013200901

PATIENT
  Age: 57 Year
  Sex: Female

DRUGS (8)
  1. XANAX [Suspect]
     Dosage: 7 DF
     Route: 048
     Dates: start: 20130702, end: 20130702
  2. TAVOR [Suspect]
     Dosage: ^2.5 1.25^ TWICE DAILY
     Route: 048
  3. TAVOR [Suspect]
     Dosage: 20 DF
     Route: 048
     Dates: start: 20130702, end: 20130702
  4. SEROQUEL [Suspect]
     Dosage: ^200^ TWICE DAILY
     Route: 048
  5. SEROQUEL [Suspect]
     Dosage: 10 DF
     Route: 048
     Dates: start: 20130702, end: 20130702
  6. MINIAS [Suspect]
     Dosage: 20 ML
     Route: 048
     Dates: start: 20130702, end: 20130702
  7. OMEPRAZOLE [Concomitant]
     Dosage: UNK
  8. SEREPRILE [Concomitant]
     Dosage: 50 MG DAILY
     Route: 048

REACTIONS (4)
  - Intentional overdose [Recovering/Resolving]
  - Intentional self-injury [Recovering/Resolving]
  - Sopor [Recovering/Resolving]
  - Speech disorder [Recovering/Resolving]
